FAERS Safety Report 24594199 (Version 1)
Quarter: 2024Q4

REPORT INFORMATION
  Report Type: Spontaneous
  Country: CN (occurrence: CN)
  Receive Date: 20241108
  Receipt Date: 20241108
  Transmission Date: 20250115
  Serious: Yes (Hospitalization)
  Sender: ELI LILLY AND COMPANY
  Company Number: CN-ELI_LILLY_AND_COMPANY-CN202411004180

PATIENT
  Age: 48 Year
  Sex: Female
  Weight: 50 kg

DRUGS (2)
  1. TADALAFIL [Suspect]
     Active Substance: TADALAFIL
     Indication: Rheumatic disorder
     Dosage: 5 MG, BID
     Route: 048
     Dates: start: 20240722, end: 20240830
  2. HYDROXYCHLOROQUINE SULFATE [Suspect]
     Active Substance: HYDROXYCHLOROQUINE SULFATE
     Indication: Rheumatic disorder
     Dosage: 0.2 G, BID
     Route: 048
     Dates: start: 20240722, end: 20240830

REACTIONS (3)
  - Erythema [Unknown]
  - Application site papules [Unknown]
  - Off label use [Unknown]

NARRATIVE: CASE EVENT DATE: 20240827
